FAERS Safety Report 6162137-9 (Version None)
Quarter: 2009Q2

REPORT INFORMATION
  Report Type: 
  Country: None (occurrence: None)
  Receive Date: 20090421
  Receipt Date: 20090417
  Transmission Date: 20091009
  Serious: Yes (Life-Threatening, Hospitalization)
  Sender: FDA-Public Use
  Company Number: FR-PFIZER INC-2007067451

PATIENT

DRUGS (17)
  1. VORICONAZOLE [Suspect]
     Route: 042
     Dates: start: 20070322, end: 20070324
  2. VORICONAZOLE [Suspect]
     Route: 048
     Dates: start: 20070325, end: 20070418
  3. VORICONAZOLE [Suspect]
     Route: 048
     Dates: start: 20070420, end: 20070528
  4. VORICONAZOLE [Suspect]
     Route: 048
     Dates: start: 20070530, end: 20070612
  5. VORICONAZOLE [Suspect]
     Route: 048
     Dates: start: 20070615, end: 20070703
  6. VORICONAZOLE [Suspect]
     Route: 042
     Dates: start: 20070704, end: 20070709
  7. VORICONAZOLE [Suspect]
     Route: 048
     Dates: start: 20070710, end: 20070711
  8. VORICONAZOLE [Suspect]
     Route: 042
     Dates: start: 20070712, end: 20070723
  9. VORICONAZOLE [Suspect]
     Route: 048
     Dates: start: 20070324, end: 20070720
  10. CORTANCYL [Concomitant]
     Route: 048
     Dates: start: 20070423
  11. NEORAL [Concomitant]
     Route: 048
     Dates: start: 20070319
  12. GLEEVEC [Concomitant]
     Route: 048
     Dates: start: 20070619
  13. NEUPOGEN [Concomitant]
     Route: 058
     Dates: start: 20070523
  14. BACTRIM DS [Concomitant]
     Route: 048
     Dates: start: 20070421
  15. DELURSAN [Concomitant]
     Route: 048
     Dates: start: 20070530
  16. XANAX [Concomitant]
     Route: 048
     Dates: start: 20070615
  17. OMEPRAZOLE [Concomitant]
     Route: 048
     Dates: start: 20070615

REACTIONS (1)
  - HUMAN HERPESVIRUS 6 INFECTION [None]
